FAERS Safety Report 9840863 (Version 1)
Quarter: 2014Q1

REPORT INFORMATION
  Report Type: Spontaneous
  Country: AT (occurrence: AT)
  Receive Date: 20140124
  Receipt Date: 20140124
  Transmission Date: 20141002
  Serious: Yes (Death, Other)
  Sender: FDA-Public Use
  Company Number: PHHY2014AT005019

PATIENT
  Age: 82 Year
  Sex: Female

DRUGS (2)
  1. GRANISETRON [Suspect]
     Dosage: 2 MG, PER DAY
  2. AZACITIDINE [Suspect]
     Indication: REFRACTORY ANAEMIA WITH AN EXCESS OF BLASTS
     Dosage: 130 MG, DAY 1-7
     Route: 058

REACTIONS (4)
  - Myelodysplastic syndrome transformation [Fatal]
  - Acute myeloid leukaemia [Fatal]
  - Colitis ischaemic [Recovered/Resolved]
  - Diarrhoea [Recovered/Resolved]
